FAERS Safety Report 20696516 (Version 1)
Quarter: 2022Q2

REPORT INFORMATION
  Report Type: Other
  Country: US (occurrence: US)
  Receive Date: 20220411
  Receipt Date: 20220411
  Transmission Date: 20220721
  Serious: No
  Sender: FDA-Public Use
  Company Number: US-TRAVERE-2022TVT00331

PATIENT
  Age: 1 Year
  Sex: Male

DRUGS (1)
  1. CHOLBAM [Suspect]
     Active Substance: CHOLIC ACID
     Indication: Cerebrohepatorenal syndrome
     Dosage: 50 MG / AS DIRECTED
     Route: 048
     Dates: start: 202202

REACTIONS (5)
  - Illness [Recovered/Resolved]
  - Irritability [Recovered/Resolved]
  - Staring [Recovered/Resolved]
  - Screaming [Recovered/Resolved]
  - Pain [Recovered/Resolved]

NARRATIVE: CASE EVENT DATE: 20220201
